FAERS Safety Report 14892972 (Version 3)
Quarter: 2018Q4

REPORT INFORMATION
  Report Type: Spontaneous
  Country: US (occurrence: US)
  Receive Date: 20180514
  Receipt Date: 20181005
  Transmission Date: 20190204
  Serious: Yes (Other)
  Sender: FDA-Public Use
  Company Number: US-PFIZER INC-2018195030

PATIENT
  Age: 67 Year
  Sex: Female

DRUGS (1)
  1. XELJANZ XR [Suspect]
     Active Substance: TOFACITINIB CITRATE
     Dosage: 11 MG
     Dates: start: 201804

REACTIONS (5)
  - Foot fracture [Unknown]
  - Muscle strain [Unknown]
  - Skin infection [Unknown]
  - Urinary tract infection [Unknown]
  - Vulvovaginal mycotic infection [Unknown]

NARRATIVE: CASE EVENT DATE: 20180504
